FAERS Safety Report 4347493-6 (Version None)
Quarter: 2004Q2

REPORT INFORMATION
  Report Type: 
  Country: None (occurrence: None)
  Receive Date: 20040421
  Receipt Date: 20040116
  Transmission Date: 20050107
  Serious: Yes (Other)
  Sender: FDA-Public Use
  Company Number: 2003113609

PATIENT
  Age: 44 Year
  Sex: Female

DRUGS (1)
  1. RELPAX [Suspect]
     Indication: MIGRAINE
     Dosage: 40 MG (DAILY)
     Dates: start: 20030910, end: 20030910

REACTIONS (3)
  - CHEST DISCOMFORT [None]
  - ODYNOPHAGIA [None]
  - THROAT TIGHTNESS [None]
